FAERS Safety Report 7616711-0 (Version None)
Quarter: 2011Q3

REPORT INFORMATION
  Report Type: 
  Country: None (occurrence: None)
  Receive Date: 20110718
  Receipt Date: 20110706
  Transmission Date: 20111222
  Serious: Yes (Other)
  Sender: FDA-Public Use
  Company Number: FR-BRISTOL-MYERS SQUIBB COMPANY-15878564

PATIENT
  Age: 9 Year
  Sex: Female

DRUGS (2)
  1. NIZORAL [Suspect]
     Indication: PITUITARY-DEPENDENT CUSHING'S SYNDROME
     Dosage: 24DEC06-30JAN07(37DAYS),31JAN07-17FEB07(17DAYS),800MG
     Dates: start: 20061224, end: 20070217
  2. LYSODREN [Suspect]
     Indication: PITUITARY-DEPENDENT CUSHING'S SYNDROME
     Dosage: 2GM 10MAY07-17JUN07(38DAYS),18JUN07-15AUG07(58DAYS).
     Dates: start: 20070510, end: 20070815

REACTIONS (1)
  - HEPATITIS [None]
